FAERS Safety Report 20456148 (Version 1)
Quarter: 2022Q1

REPORT INFORMATION
  Report Type: Spontaneous
  Country: US (occurrence: None)
  Receive Date: 20220210
  Receipt Date: 20220210
  Transmission Date: 20220423
  Serious: No
  Sender: FDA-Public Use
  Company Number: None

PATIENT
  Age: 42 Year
  Sex: Male
  Weight: 298 kg

DRUGS (1)
  1. METFORMIN HYDROCHLORIDE [Suspect]
     Active Substance: METFORMIN HYDROCHLORIDE
     Indication: Diabetes mellitus
     Dosage: FREQUENCY : TWICE A DAY;?
     Route: 048
     Dates: start: 20060101, end: 20211019

REACTIONS (4)
  - Diarrhoea [None]
  - Wrong technique in product usage process [None]
  - Arrhythmia [None]
  - Electrolyte imbalance [None]

NARRATIVE: CASE EVENT DATE: 20211019
